FAERS Safety Report 9000004 (Version 2)
Quarter: 2013Q1

REPORT INFORMATION
  Report Type: Spontaneous
  Country: US (occurrence: US)
  Receive Date: 20130102
  Receipt Date: 20130124
  Transmission Date: 20140127
  Serious: Yes (Congenital Anomaly, Other)
  Sender: FDA-Public Use
  Company Number: US-PFIZER INC-2012327982

PATIENT
  Age: 9 Month
  Sex: Female

DRUGS (11)
  1. ZOLOFT [Suspect]
     Indication: DEPRESSION
     Dosage: UNK
     Route: 064
     Dates: start: 199701, end: 201301
  2. SERTRALINE HCL [Suspect]
     Indication: DEPRESSION
     Dosage: UNK
     Route: 064
     Dates: start: 199701, end: 201301
  3. SYNTHROID [Concomitant]
     Dosage: UNK
     Route: 064
  4. MAG-OX [Concomitant]
     Dosage: UNK
     Route: 064
  5. ORTHO TRI CYCLEN [Concomitant]
     Dosage: UNK
     Route: 064
  6. BRETHINE [Concomitant]
     Dosage: UNK
     Route: 064
  7. NORTRIPTYLINE [Concomitant]
     Dosage: UNK
     Route: 064
  8. TRIMOX [Concomitant]
     Dosage: UNK
     Route: 064
  9. SULFAMETHOXAZOLE W/TRIMETHOPRIM [Concomitant]
     Dosage: UNK
     Route: 064
  10. MINTEZOL [Concomitant]
     Dosage: UNK
     Route: 064
  11. PRENATAL VITAMINS [Concomitant]
     Dosage: UNK
     Route: 064

REACTIONS (4)
  - Maternal exposure timing unspecified [Unknown]
  - Ventricular septal defect [Unknown]
  - Atrial septal defect [Unknown]
  - Congenital anomaly [Unknown]
